FAERS Safety Report 17069309 (Version 1)
Quarter: 2019Q4

REPORT INFORMATION
  Report Type: Spontaneous
  Country: CN (occurrence: CN)
  Receive Date: 20191125
  Receipt Date: 20191125
  Transmission Date: 20200122
  Serious: Yes (Other)
  Sender: FDA-Public Use
  Company Number: CN-ROCHE-2472656

PATIENT
  Age: 56 Year
  Sex: Female

DRUGS (18)
  1. METOPROLOL. [Concomitant]
     Active Substance: METOPROLOL
     Indication: HYPERTENSION
     Dosage: DF=TABLET
     Route: 048
  2. CYCLOPHOSPHAMIDE. [Concomitant]
     Active Substance: CYCLOPHOSPHAMIDE
     Dosage: DAY 1, 4 CYCLES R-CEOP REGIMEN
     Route: 065
     Dates: start: 20160622
  3. COPANLISIB. [Concomitant]
     Active Substance: COPANLISIB
     Indication: B-CELL LYMPHOMA
     Dosage: MAINTAIN 1 HOUR
     Route: 065
     Dates: start: 20170101
  4. AMLODIPINE [Concomitant]
     Active Substance: AMLODIPINE BESYLATE
     Indication: HYPERTENSION
     Dosage: DF=TABLET
     Route: 048
  5. VINCRISTINE [Concomitant]
     Active Substance: VINCRISTINE
     Indication: B-CELL LYMPHOMA
     Dosage: DAY 1, 4 CYCLES R-COP REGIMEN
     Route: 065
     Dates: start: 20160331
  6. MABTHERA [Suspect]
     Active Substance: RITUXIMAB
     Indication: B-CELL LYMPHOMA
     Dosage: DAY 1, 4 CYCLES R-COP REGIMEN
     Route: 065
     Dates: start: 20160331
  7. DEXAMETHASONE. [Concomitant]
     Active Substance: DEXAMETHASONE
     Indication: B-CELL LYMPHOMA
     Dosage: DAY1-4, R2-GDP REGIMEN
     Route: 065
     Dates: start: 20190515
  8. MABTHERA [Suspect]
     Active Substance: RITUXIMAB
     Dosage: MAINTAIN 4 HOURS
     Route: 065
     Dates: start: 2017
  9. EPIRUBICIN [Concomitant]
     Active Substance: EPIRUBICIN
     Indication: B-CELL LYMPHOMA
     Dosage: DAY 1, 4 CYCLES R-CEOP REGIMEN
     Route: 065
     Dates: start: 20160622
  10. CISPLATIN. [Concomitant]
     Active Substance: CISPLATIN
     Indication: B-CELL LYMPHOMA
     Dosage: 30 MG DAY 1-3, 20MG DAY 4, R2-GDP REGIMEN
     Route: 065
     Dates: start: 20190515
  11. PREDNISONE. [Concomitant]
     Active Substance: PREDNISONE
     Dosage: DAY 12, 4 CYCLES R-CEOP REGIMEN
     Route: 065
     Dates: start: 20160622
  12. MABTHERA [Suspect]
     Active Substance: RITUXIMAB
     Dosage: DAY0, R2-GDP REGIMEN
     Route: 065
     Dates: start: 20190515
  13. PREDNISONE. [Concomitant]
     Active Substance: PREDNISONE
     Indication: B-CELL LYMPHOMA
     Dosage: DAY 1-5, 4 CYCLES R-COP REGIMEN
     Route: 065
     Dates: start: 20160331
  14. LENALIDOMIDE [Concomitant]
     Active Substance: LENALIDOMIDE
     Indication: B-CELL LYMPHOMA
     Dosage: DAY 1-10, R2-GDP REGIMEN
     Route: 065
     Dates: start: 20190515
  15. CYCLOPHOSPHAMIDE. [Concomitant]
     Active Substance: CYCLOPHOSPHAMIDE
     Indication: B-CELL LYMPHOMA
     Dosage: DAY 1, 4 CYCLES R-COP REGIMEN
     Route: 065
     Dates: start: 20160331
  16. MABTHERA [Suspect]
     Active Substance: RITUXIMAB
     Dosage: DAY 12, 4 CYCLES R-CEOP REGIMEN
     Route: 065
     Dates: start: 20160622
  17. VINDESINE [Concomitant]
     Active Substance: VINDESINE
     Indication: B-CELL LYMPHOMA
     Dosage: DAY 1, 4 CYCLES R-CEOP REGIMEN
     Route: 065
     Dates: start: 20160622
  18. DECITABINE. [Concomitant]
     Active Substance: DECITABINE
     Indication: B-CELL LYMPHOMA
     Dosage: DAY 1 AND 8, R2-GDP REGIMEN
     Route: 065
     Dates: start: 20190515

REACTIONS (2)
  - Ventricular extrasystoles [Unknown]
  - Chest discomfort [Unknown]

NARRATIVE: CASE EVENT DATE: 20171128
